FAERS Safety Report 11295033 (Version 2)
Quarter: 2015Q3

REPORT INFORMATION
  Report Type: Report from Study
  Country: US (occurrence: US)
  Receive Date: 20150723
  Receipt Date: 20150807
  Transmission Date: 20151125
  Serious: Yes (Other)
  Sender: FDA-Public Use
  Company Number: US-AMGEN-USASL2015072857

PATIENT
  Sex: Male

DRUGS (1)
  1. ENBREL [Suspect]
     Active Substance: ETANERCEPT
     Indication: PRODUCT USED FOR UNKNOWN INDICATION
     Dosage: UNK
     Route: 065

REACTIONS (8)
  - Inappropriate schedule of drug administration [Unknown]
  - Staphylococcal infection [Recovered/Resolved]
  - Injury [Unknown]
  - Contusion [Unknown]
  - Incorrect dose administered [Unknown]
  - Injection site mass [Unknown]
  - Haemorrhage subcutaneous [Unknown]
  - Scratch [Unknown]
